FAERS Safety Report 21233603 (Version 6)
Quarter: 2022Q4

REPORT INFORMATION
  Report Type: Report from Study
  Country: KR (occurrence: KR)
  Receive Date: 20220819
  Receipt Date: 20221118
  Transmission Date: 20230113
  Serious: Yes (Hospitalization)
  Sender: FDA-Public Use
  Company Number: KR-JNJFOC-20220561867

PATIENT
  Age: 61 Year
  Sex: Male
  Weight: 76.2 kg

DRUGS (71)
  1. TECLISTAMAB [Suspect]
     Active Substance: TECLISTAMAB
     Indication: Plasma cell myeloma refractory
     Route: 058
     Dates: start: 20220429, end: 20220504
  2. TECLISTAMAB [Suspect]
     Active Substance: TECLISTAMAB
     Dosage: DOSE ALSO REPORTED AS 1.4 ML FROM 06-MAY-2022 TO 18-MAY-2022.
     Route: 058
     Dates: start: 20220506, end: 20220718
  3. DARATUMUMAB [Suspect]
     Active Substance: DARATUMUMAB
     Indication: Plasma cell myeloma refractory
     Route: 058
     Dates: start: 20220428, end: 20220718
  4. COMBIFLEX PERI [Concomitant]
     Indication: Nutritional supplementation
     Route: 042
     Dates: start: 20220406
  5. MAXIPIME [Concomitant]
     Active Substance: CEFEPIME HYDROCHLORIDE
     Indication: Febrile neutropenia
     Route: 042
     Dates: start: 20220406
  6. MAXIPIME [Concomitant]
     Active Substance: CEFEPIME HYDROCHLORIDE
     Indication: Pyrexia
     Route: 042
     Dates: start: 20220527, end: 20220530
  7. TRAMADOL HYDROCHLORIDE [Concomitant]
     Active Substance: TRAMADOL HYDROCHLORIDE
     Indication: Neutrophil count decreased
     Dosage: 100MG/2ML/AM
     Route: 042
     Dates: start: 20220406
  8. GRASIN [Concomitant]
     Indication: Febrile neutropenia
     Dosage: 300MCG/0.7ML
     Route: 058
     Dates: start: 20220406
  9. GRASIN [Concomitant]
     Indication: Neutrophil count decreased
     Dosage: 300 MCG/0.7 ML
     Route: 058
     Dates: start: 20220518, end: 20220518
  10. GRASIN [Concomitant]
     Dosage: 300 MCG/0.7 ML
     Route: 058
     Dates: start: 20220523, end: 20220523
  11. GATIFLOXACIN [Concomitant]
     Active Substance: GATIFLOXACIN
     Indication: Cataract operation
     Dosage: 5ML
     Route: 047
     Dates: start: 20220414
  12. PREDBELL [Concomitant]
     Indication: Cataract operation
     Route: 047
     Dates: start: 20220414
  13. MYPOL [CODEINE PHOSPHATE;IBUPROFEN;PARACETAMOL] [Concomitant]
     Indication: Pain management
     Route: 048
     Dates: start: 20220428
  14. OXYCODONE HYDROCHLORIDE [Concomitant]
     Active Substance: OXYCODONE HYDROCHLORIDE
     Indication: Pain management
     Route: 048
     Dates: start: 20220428
  15. SINIL-M [Concomitant]
     Indication: Constipation
     Route: 048
     Dates: start: 20220428
  16. DEXAMETHASONE [Concomitant]
     Active Substance: DEXAMETHASONE
     Indication: Premedication
     Route: 042
     Dates: start: 20220428
  17. CHLORPHENIRAMINE MALEATE [Concomitant]
     Active Substance: CHLORPHENIRAMINE MALEATE
     Indication: Prophylaxis
     Route: 042
     Dates: start: 20220428
  18. ACETAMINOPHEN [Concomitant]
     Active Substance: ACETAMINOPHEN
     Indication: Prophylaxis
     Route: 048
     Dates: start: 20220428
  19. SINGULAIR [Concomitant]
     Active Substance: MONTELUKAST SODIUM
     Indication: Prophylaxis
     Route: 048
     Dates: start: 20220428
  20. PROPACETAMOL HYDROCHLORIDE [Concomitant]
     Active Substance: PROPACETAMOL HYDROCHLORIDE
     Indication: Cytokine release syndrome
     Route: 042
     Dates: start: 20220430
  21. PROPACETAMOL HYDROCHLORIDE [Concomitant]
     Active Substance: PROPACETAMOL HYDROCHLORIDE
     Indication: Pyrexia
     Route: 042
     Dates: start: 20220527, end: 20220527
  22. PROFA [Concomitant]
     Indication: Cytokine release syndrome
     Route: 042
     Dates: start: 20220430
  23. ACTEMRA [Concomitant]
     Active Substance: TOCILIZUMAB
     Indication: Cytokine release syndrome
     Route: 042
     Dates: start: 20220502
  24. AGIO [Concomitant]
     Indication: Constipation
     Route: 048
     Dates: start: 20220503
  25. DULACT [Concomitant]
     Indication: Constipation
     Route: 048
     Dates: start: 20220503
  26. PHOSTEN [Concomitant]
     Indication: Hypocalcaemia
     Route: 042
     Dates: start: 20220504
  27. POTASSIUM CHLORIDE [Concomitant]
     Active Substance: POTASSIUM CHLORIDE
     Indication: Hypocalcaemia
     Route: 048
     Dates: start: 20220505, end: 20220809
  28. CEBETABS [Concomitant]
     Indication: Nutritional supplementation
     Route: 048
     Dates: start: 20220505
  29. AMINO ACIDS\DEXTROSE\ELECTROLYTES NOS\SOYBEAN OIL\VITAMINS [Concomitant]
     Active Substance: AMINO ACIDS\DEXTROSE\ELECTROLYTES NOS\SOYBEAN OIL\VITAMINS
     Indication: Nutritional supplementation
     Route: 042
     Dates: start: 20220506
  30. CALCIUM GLUCONATE [Concomitant]
     Active Substance: CALCIUM GLUCONATE
     Indication: Hypocalcaemia
     Route: 042
     Dates: start: 20220506
  31. TAOR [Concomitant]
     Indication: Benign prostatic hyperplasia
     Route: 048
  32. CIALIS [Concomitant]
     Active Substance: TADALAFIL
     Indication: Benign prostatic hyperplasia
     Route: 048
  33. ESCHERICHIA COLI [Concomitant]
     Active Substance: ESCHERICHIA COLI
     Indication: Benign prostatic hyperplasia
     Route: 048
  34. HINECHOL [Concomitant]
     Indication: Benign prostatic hyperplasia
     Route: 048
  35. HINECHOL [Concomitant]
     Route: 048
  36. LAFUTIDINE [Concomitant]
     Active Substance: LAFUTIDINE
     Indication: Gastrointestinal disorder therapy
     Route: 048
  37. LIPITOR [Concomitant]
     Active Substance: ATORVASTATIN CALCIUM
     Indication: Dyslipidaemia
     Route: 048
  38. CHOLINE ALFOSCERATE [Concomitant]
     Active Substance: CHOLINE ALFOSCERATE
     Indication: Neuropathy peripheral
     Route: 048
  39. GINEXIN-F [Concomitant]
     Indication: Neuropathy peripheral
     Route: 048
  40. SIWONAL SR [Concomitant]
     Indication: Benign prostatic hyperplasia
     Route: 048
  41. ULTRACET [Concomitant]
     Active Substance: ACETAMINOPHEN\TRAMADOL HYDROCHLORIDE
     Indication: Pain management
     Route: 048
  42. FENTANYL [Concomitant]
     Active Substance: FENTANYL
     Indication: Pain management
     Dosage: 12MCG/H
     Route: 062
  43. NALOXONE HYDROCHLORIDE\OXYCODONE HYDROCHLORIDE [Concomitant]
     Active Substance: NALOXONE HYDROCHLORIDE\OXYCODONE HYDROCHLORIDE
     Indication: Pain management
     Dosage: 10/5 MG
     Route: 048
  44. AMITRIPTYLINE [Concomitant]
     Active Substance: AMITRIPTYLINE
     Indication: Neuropathy peripheral
     Dosage: ETRAVIL
     Route: 048
  45. LYRICA [Concomitant]
     Active Substance: PREGABALIN
     Indication: Neuropathy peripheral
     Route: 048
  46. VORICONAZOLE [Concomitant]
     Active Substance: VORICONAZOLE
     Indication: Fungaemia
     Dosage: 200MG/VIAL
     Route: 042
     Dates: start: 20220817, end: 20220822
  47. AMITRIPTYLINE [Concomitant]
     Active Substance: AMITRIPTYLINE
     Indication: Neuropathy peripheral
     Route: 048
  48. PREGABALIN [Concomitant]
     Active Substance: PREGABALIN
     Indication: Neuropathy peripheral
     Route: 048
  49. GINKGO [Concomitant]
     Active Substance: GINKGO
     Indication: Neuropathy peripheral
     Route: 048
  50. LAFUTIDINE [Concomitant]
     Active Substance: LAFUTIDINE
     Indication: Gastrointestinal disorder therapy
     Dosage: STOGAR TAB
     Route: 048
  51. BETHANECHOL [Concomitant]
     Active Substance: BETHANECHOL
     Indication: Benign prostatic hyperplasia
     Dosage: HINECHOL TAB 25MG (BETHANECHOL)
     Route: 048
  52. TRAMADOL [Concomitant]
     Active Substance: TRAMADOL
     Indication: Pain management
     Route: 048
  53. TADALAFIL [Concomitant]
     Active Substance: TADALAFIL
     Indication: Benign prostatic hyperplasia
     Route: 048
  54. NALOXONE HYDROCHLORIDE\OXYCODONE HYDROCHLORIDE [Concomitant]
     Active Substance: NALOXONE HYDROCHLORIDE\OXYCODONE HYDROCHLORIDE
     Indication: Pain management
     Dosage: TARGIN PR TAB 10/5MG
     Route: 048
  55. BACTERIA LYSATE NOS [Concomitant]
     Indication: Benign prostatic hyperplasia
     Dosage: URO-VAXOM CAP(STANDARDIZED LYOPHYLLIZED OF BACTERIAL LYSATE 60MG) 60MG
     Route: 048
  56. METHIMAZOLE [Concomitant]
     Active Substance: METHIMAZOLE
     Indication: Thyroid disorder
     Route: 048
     Dates: start: 20220729
  57. ATROVENT [Concomitant]
     Active Substance: IPRATROPIUM BROMIDE
     Indication: Prophylaxis
     Route: 055
     Dates: start: 20220729, end: 20220816
  58. VENTOLIN [Concomitant]
     Active Substance: ALBUTEROL SULFATE
     Indication: Prophylaxis
     Dosage: 2.5MG/2.5ML
     Route: 055
     Dates: start: 20220729, end: 20220816
  59. MUCOMYST [Concomitant]
     Active Substance: ACETYLCYSTEINE
     Indication: Prophylaxis
     Dosage: 800MG/4ML
     Route: 055
     Dates: start: 20220729, end: 20220816
  60. MUCOMYST [Concomitant]
     Active Substance: ACETYLCYSTEINE
     Route: 048
     Dates: start: 20220818, end: 20220920
  61. FLAGYL [Concomitant]
     Active Substance: METRONIDAZOLE\METRONIDAZOLE HYDROCHLORIDE
     Indication: Infection prophylaxis
     Dosage: 500MG/100ML/BT
     Route: 042
     Dates: start: 20220801
  62. PROPOFOL [Concomitant]
     Active Substance: PROPOFOL
     Indication: Anaesthesia
     Route: 042
     Dates: start: 20220802, end: 20220802
  63. CAFSOL [Concomitant]
     Indication: Nutritional supplementation
     Dosage: 500ML/BT(AMINO ACID)
     Route: 042
     Dates: start: 20220805
  64. TAMIPOOL [VITAMINS NOS] [Concomitant]
     Indication: Nutritional supplementation
     Route: 042
     Dates: start: 20220805
  65. MEGESTROL ACETATE [Concomitant]
     Active Substance: MEGESTROL ACETATE
     Indication: Gastrointestinal disorder therapy
     Dosage: 5ML/PACK
     Route: 048
     Dates: start: 20220805
  66. POTASSIUM CHLORIDE [Concomitant]
     Active Substance: POTASSIUM CHLORIDE
     Indication: Hypokalaemia
     Route: 048
     Dates: start: 20220806
  67. CICIBON [Concomitant]
     Indication: Hypocalcaemia
     Dosage: 500MG
     Route: 048
     Dates: start: 20220809, end: 20220809
  68. CICIBON [Concomitant]
     Dosage: 500MG
     Route: 048
     Dates: start: 20220814, end: 20220814
  69. GRASIN [Concomitant]
     Indication: Neutrophil count decreased
     Dosage: GRASIN PFS INJ 300MCG/0.7ML (FILGRASTIM)
     Route: 042
     Dates: start: 20220819, end: 20220819
  70. GRASIN [Concomitant]
     Route: 042
     Dates: start: 20220820
  71. CALCIUM POLYCARBOPHIL [Concomitant]
     Active Substance: CALCIUM POLYCARBOPHIL
     Indication: Constipation
     Route: 048
     Dates: start: 20220818

REACTIONS (3)
  - Cytomegalovirus infection reactivation [Recovering/Resolving]
  - Pyrexia [Recovered/Resolved]
  - Neutropenia [Recovered/Resolved]

NARRATIVE: CASE EVENT DATE: 20220526
